FAERS Safety Report 8600732-5 (Version None)
Quarter: 2012Q3

REPORT INFORMATION
  Report Type: 
  Country: None (occurrence: None)
  Receive Date: 20120817
  Receipt Date: 20120803
  Transmission Date: 20120928
  Serious: Yes (Death, Life-Threatening, Hospitalization)
  Sender: FDA-Public Use
  Company Number: DE-RANBAXY-2011RR-43218

PATIENT
  Age: 82 Year
  Sex: Male
  Weight: 90 kg

DRUGS (2)
  1. MARCUMAR [Suspect]
     Indication: ATRIAL FIBRILLATION
     Dosage: UNK
     Route: 048
  2. CIPROFLOXACIN [Suspect]
     Indication: SUBCUTANEOUS ABSCESS
     Dosage: UNK
     Route: 048
     Dates: start: 20071001

REACTIONS (6)
  - GROIN PAIN [None]
  - PROTHROMBIN LEVEL DECREASED [None]
  - SPONTANEOUS HAEMATOMA [None]
  - SYNCOPE [None]
  - RETROPERITONEAL HAEMORRHAGE [None]
  - DRUG INTERACTION [None]
